FAERS Safety Report 5063626-0 (Version None)
Quarter: 2006Q3

REPORT INFORMATION
  Report Type: 
  Country: None (occurrence: None)
  Receive Date: 20060724
  Receipt Date: 20060719
  Transmission Date: 20061208
  Serious: Yes (Life-Threatening, Hospitalization, Other)
  Sender: FDA-Public Use
  Company Number: HQWYE259619JUN06

PATIENT
  Age: 91 Year
  Sex: Female

DRUGS (9)
  1. ETODOLAC [Suspect]
     Indication: PAIN
     Dosage: 400 MG 1X PER 1 DAY ORAL
     Route: 048
     Dates: start: 20051214, end: 20060417
  2. ALDIOXA (ALDIOXA, ) [Suspect]
     Indication: ABDOMINAL PAIN UPPER
     Dosage: 200 MG 1X PER 1 DAY ORAL
     Route: 048
     Dates: start: 20051214, end: 20060417
  3. ALPRAZOLAM [Suspect]
     Indication: INSOMNIA
     Dosage: 0.4 MG 1X PER 1 DAY
     Dates: start: 20060201, end: 20060417
  4. LIMAPROST (LIMAPROST, ) [Suspect]
     Indication: LUMBAR SPINAL STENOSIS
     Dosage: 10 UG 1X PER 1 DAY
     Dates: start: 20060201, end: 20060410
  5. SERRAPEPTASE (SERRAPEPTASE) [Suspect]
     Dosage: 20 MG 1X PER 1 DAY
     Dates: start: 20050201, end: 20060417
  6. TIZANIDINE HCL [Suspect]
     Indication: LUMBAR SPINAL STENOSIS
     Dosage: 2 MG 1X PER 1 DAY
     Dates: end: 20060417
  7. URSODIOL [Suspect]
     Indication: HEPATIC FUNCTION ABNORMAL
     Dosage: 600 MG 1X PER 1 DAY
     Dates: start: 20060201, end: 20060417
  8. VERAPAMIL HCL [Suspect]
     Indication: SUPRAVENTRICULAR TACHYCARDIA
     Dosage: 120 MG 1X PER 1 DAY
     Dates: start: 20060201, end: 20060417
  9. ZOLPIDEM TARTRATE [Suspect]
     Indication: INSOMNIA
     Dosage: 5 MG 1X PER 1 DAY
     Dates: start: 20051214, end: 20060417

REACTIONS (1)
  - DUODENAL ULCER PERFORATION [None]
